FAERS Safety Report 15579500 (Version 1)
Quarter: 2018Q4

REPORT INFORMATION
  Report Type: Spontaneous
  Country: KZ (occurrence: US)
  Receive Date: 20181102
  Receipt Date: 20181102
  Transmission Date: 20190205
  Serious: Yes (Death, Hospitalization, Other)
  Sender: FDA-Public Use
  Company Number: KZ-PFIZER INC-2018446477

PATIENT
  Age: 62 Year
  Sex: Male
  Weight: 61.81 kg

DRUGS (10)
  1. CLOFAZIMINE [Suspect]
     Active Substance: CLOFAZIMINE
     Dosage: 200 MG, 1X/DAY
     Route: 048
     Dates: start: 20180402, end: 2018
  2. BEDAQUILINE [Suspect]
     Active Substance: BEDAQUILINE
     Indication: PULMONARY TUBERCULOSIS
     Dosage: 400 MG, 1X/DAY
     Route: 048
     Dates: start: 20180709, end: 20180713
  3. CILASTATIN/IMIPENEM [Suspect]
     Active Substance: CILASTATIN SODIUM\IMIPENEM
     Indication: PULMONARY TUBERCULOSIS
     Dosage: 2000 MG, 1X/DAY
     Route: 042
     Dates: start: 20180402, end: 20180625
  4. CLOFAZIMINE [Suspect]
     Active Substance: CLOFAZIMINE
     Indication: PULMONARY TUBERCULOSIS
     Dosage: 200 MG, 1X/DAY
     Route: 048
     Dates: start: 20180402, end: 20180713
  5. LINEZOLID. [Suspect]
     Active Substance: LINEZOLID
     Indication: PULMONARY TUBERCULOSIS
     Dosage: 600 MG, 1X/DAY
     Route: 048
     Dates: start: 20180402, end: 20180713
  6. LINEZOLID. [Suspect]
     Active Substance: LINEZOLID
     Dosage: 600 MG, 1X/DAY
     Route: 048
     Dates: start: 20180402, end: 2018
  7. BEDAQUILINE [Suspect]
     Active Substance: BEDAQUILINE
     Dosage: 400 MG, 1X/DAY (400 (200)MG)
     Route: 048
     Dates: start: 20180402, end: 2018
  8. DELAMANID [Suspect]
     Active Substance: DELAMANID
     Indication: PULMONARY TUBERCULOSIS
     Dosage: 200 MG, DAILY
     Route: 048
     Dates: start: 20180402, end: 2018
  9. DELAMANID [Suspect]
     Active Substance: DELAMANID
     Dosage: 200 MG, 1X/DAY
     Route: 048
     Dates: start: 20180709, end: 20180713
  10. AMOXICILLIN AND CLAVULANATE POTASSIUM [Suspect]
     Active Substance: AMOXICILLIN\CLAVULANATE POTASSIUM
     Indication: PULMONARY TUBERCULOSIS
     Dosage: 1250 MG, 1X/DAY
     Route: 048
     Dates: start: 20180402, end: 20180625

REACTIONS (7)
  - Blood pressure abnormal [Unknown]
  - Skin discolouration [Unknown]
  - Loss of consciousness [Unknown]
  - Pulmonary embolism [Fatal]
  - Dyspnoea [Unknown]
  - Mydriasis [Unknown]
  - Pulse absent [Unknown]

NARRATIVE: CASE EVENT DATE: 20180829
